FAERS Safety Report 24670419 (Version 1)
Quarter: 2024Q4

REPORT INFORMATION
  Report Type: Spontaneous
  Country: HU (occurrence: HU)
  Receive Date: 20241127
  Receipt Date: 20241127
  Transmission Date: 20250115
  Serious: Yes (Other)
  Sender: FRESENIUS KABI
  Company Number: HU-JNJFOC-20241113137

PATIENT
  Age: 65 Year
  Sex: Male

DRUGS (6)
  1. DEXAMETHASONE [Suspect]
     Active Substance: DEXAMETHASONE
     Indication: Plasma cell myeloma refractory
     Dosage: ROUTE OF ADMINISTRATION: UNKNOWN?DOSE FORM: UNKNOWN
     Dates: start: 202208
  2. DEXAMETHASONE [Suspect]
     Active Substance: DEXAMETHASONE
     Dosage: ROUTE OF ADMINISTRATION: UNKNOWN?DOSE FORM: UNKNOWN
  3. DARZALEX [Suspect]
     Active Substance: DARATUMUMAB
     Indication: Plasma cell myeloma refractory
     Dosage: FOA: CONCENTRATE FOR SOLUTION FOR INFUSION?ROA: UNKNOWN
     Dates: start: 202208
  4. DARZALEX [Suspect]
     Active Substance: DARATUMUMAB
     Dosage: FOA: CONCENTRATE FOR SOLUTION FOR INFUSION?ROA: UNKNOWN
  5. LENALIDOMIDE [Suspect]
     Active Substance: LENALIDOMIDE
     Indication: Plasma cell myeloma refractory
     Dosage: FOA: UNKNOWN?ROA: UNKNOWN
     Dates: start: 202208
  6. LENALIDOMIDE [Suspect]
     Active Substance: LENALIDOMIDE
     Dosage: FOA: UNKNOWN?ROA: UNKNOWN

REACTIONS (5)
  - Stem cell transplant [Unknown]
  - Febrile neutropenia [Unknown]
  - Cytomegalovirus infection reactivation [Unknown]
  - Mucosal inflammation [Unknown]
  - Infection [Unknown]

NARRATIVE: CASE EVENT DATE: 20230925
